FAERS Safety Report 8828717 (Version 1)
Quarter: 2012Q4

REPORT INFORMATION
  Report Type: 
  Country: US (occurrence: US)
  Receive Date: 20121008
  Receipt Date: 20121008
  Transmission Date: 20130627
  Serious: No
  Sender: FDA-Public Use
  Company Number: US-VERTEX PHARMACEUTICAL INC.-2012-021712

PATIENT
  Age: 59 Year
  Sex: Male
  Weight: 104 kg

DRUGS (4)
  1. VX-950 [Suspect]
     Indication: HEPATITIS C
     Dosage: 750 mg, tid
     Route: 048
  2. PEGASYS [Concomitant]
     Indication: HEPATITIS C
  3. RIBAVIRIN [Concomitant]
     Indication: HEPATITIS C
     Dosage: 200 mg, UNK
  4. AMLODIPINE [Concomitant]
     Dosage: 5 mg, UNK

REACTIONS (7)
  - Insomnia [Unknown]
  - Pollakiuria [Unknown]
  - Irritability [Unknown]
  - Asthenia [Unknown]
  - Rash generalised [Unknown]
  - Anal pruritus [Unknown]
  - Nausea [Unknown]
